FAERS Safety Report 6760916-8 (Version None)
Quarter: 2010Q2

REPORT INFORMATION
  Report Type: 
  Country: None (occurrence: None)
  Receive Date: 20100604
  Receipt Date: 20100528
  Transmission Date: 20101027
  Serious: Yes (Other)
  Sender: FDA-Public Use
  Company Number: 1000014145

PATIENT
  Age: 81 Year
  Sex: Male

DRUGS (2)
  1. BYSTOLIC [Suspect]
     Indication: ATRIAL FLUTTER
     Dosage: 0.25 MG (0.25 MCG), ORAL
     Route: 048
     Dates: start: 20100510
  2. MULTAQ [Suspect]
     Indication: ATRIAL FLUTTER
     Dosage: 800 MG (400 MG, 2 IN 1 D), ORAL
     Route: 048
     Dates: start: 20100510

REACTIONS (3)
  - CARDIAC ARREST [None]
  - CONVULSION [None]
  - CORONARY ARTERY DISEASE [None]
